FAERS Safety Report 25548179 (Version 1)
Quarter: 2025Q3

REPORT INFORMATION
  Report Type: Report from Study
  Country: IN (occurrence: IN)
  Receive Date: 20250714
  Receipt Date: 20250714
  Transmission Date: 20251021
  Serious: Yes (Death)
  Sender: ROCHE
  Company Number: IN-ROCHE-10000336130

PATIENT
  Age: 60 Year
  Sex: Female

DRUGS (1)
  1. POLIVY [Suspect]
     Active Substance: POLATUZUMAB VEDOTIN-PIIQ
     Indication: High-grade B-cell lymphoma
     Route: 042
     Dates: start: 20250507

REACTIONS (1)
  - Death [Fatal]
